FAERS Safety Report 7815371-3 (Version None)
Quarter: 2011Q4

REPORT INFORMATION
  Report Type: 
  Country: None (occurrence: None)
  Receive Date: 20111014
  Receipt Date: 20110929
  Transmission Date: 20120403
  Serious: Yes (Other)
  Sender: FDA-Public Use
  Company Number: US-BAYER-2011-097175

PATIENT
  Sex: Female
  Weight: 51.247 kg

DRUGS (2)
  1. NAPROXEN SODIUM [Suspect]
  2. BUPROPION HYDROCHLORIDE [Concomitant]
     Dosage: 200 MG, BID

REACTIONS (1)
  - ULCER HAEMORRHAGE [None]
